FAERS Safety Report 10471754 (Version 3)
Quarter: 2016Q1

REPORT INFORMATION
  Report Type: Spontaneous
  Country: DK (occurrence: DK)
  Receive Date: 20140923
  Receipt Date: 20160121
  Transmission Date: 20160525
  Serious: Yes (Life-Threatening)
  Sender: FDA-Public Use
  Company Number: PHHY2014DK121833

PATIENT
  Age: 50 Year
  Sex: Female
  Weight: 78 kg

DRUGS (3)
  1. CORODIL [Interacting]
     Active Substance: DIPYRIDAMOLE
     Dosage: STYRKE: 20 MG.
     Route: 048
  2. ACTILYSE [Interacting]
     Active Substance: ALTEPLASE
     Indication: CEREBRAL INFARCTION
     Dates: start: 20140917
  3. CORODIL [Suspect]
     Active Substance: DIPYRIDAMOLE
     Indication: HYPERTENSION
     Dosage: 20 MG
     Route: 048
     Dates: start: 20070226

REACTIONS (2)
  - Angioedema [Recovered/Resolved]
  - Drug interaction [Recovered/Resolved]

NARRATIVE: CASE EVENT DATE: 20140917
